FAERS Safety Report 17509423 (Version 2)
Quarter: 2020Q2

REPORT INFORMATION
  Report Type: Spontaneous
  Country: US (occurrence: US)
  Receive Date: 20200306
  Receipt Date: 20200504
  Transmission Date: 20200713
  Serious: No
  Sender: FDA-Public Use
  Company Number: US-SA-2020SA054101

PATIENT
  Age: 62 Year
  Sex: Female

DRUGS (1)
  1. DUPIXENT [Suspect]
     Active Substance: DUPILUMAB
     Indication: DERMATITIS ATOPIC
     Dosage: 300 MG, QOW
     Route: 058
     Dates: start: 201911

REACTIONS (9)
  - Hyperhidrosis [Unknown]
  - Pain [Unknown]
  - Injection site erythema [Unknown]
  - Toothache [Unknown]
  - Condition aggravated [Unknown]
  - Dry mouth [Unknown]
  - Injection site pruritus [Unknown]
  - Asthma [Unknown]
  - Pruritus [Unknown]

NARRATIVE: CASE EVENT DATE: 202002
